FAERS Safety Report 20151959 (Version 4)
Quarter: 2022Q1

REPORT INFORMATION
  Report Type: Report from Study
  Country: US (occurrence: US)
  Receive Date: 20211206
  Receipt Date: 20220307
  Transmission Date: 20220424
  Serious: Yes (Other)
  Sender: FDA-Public Use
  Company Number: US-NOVARTISTESTPH-NVSC2021US278683

PATIENT
  Sex: Female

DRUGS (1)
  1. KESIMPTA [Suspect]
     Active Substance: OFATUMUMAB
     Indication: Multiple sclerosis
     Dosage: 0.4 ML, QMO
     Route: 058

REACTIONS (7)
  - Cerebrovascular accident [Unknown]
  - Seizure [Unknown]
  - Multiple sclerosis [Unknown]
  - Tremor [Unknown]
  - Pain [Unknown]
  - Memory impairment [Unknown]
  - Illness [Unknown]
